FAERS Safety Report 5343826-2 (Version None)
Quarter: 2007Q2

REPORT INFORMATION
  Report Type: 
  Country: None (occurrence: None)
  Receive Date: 20070531
  Receipt Date: 20070522
  Transmission Date: 20071010
  Serious: Yes (Hospitalization)
  Sender: FDA-Public Use
  Company Number: TPA2007A01078

PATIENT
  Age: 73 Year
  Sex: Female

DRUGS (3)
  1. PIOGLITAZONE HCL [Suspect]
     Indication: CARDIOVASCULAR DISORDER
     Dosage: 1 IN 1 D, PER ORAL
     Route: 048
  2. PIOGLITAZONE HCL [Suspect]
     Indication: CEREBROVASCULAR ACCIDENT PROPHYLAXIS
     Dosage: 1 IN 1 D, PER ORAL
     Route: 048
  3. PIOGLITAZONE HCL [Suspect]
     Indication: PROPHYLAXIS
     Dosage: 1 IN 1 D, PER ORAL
     Route: 048

REACTIONS (1)
  - COMPRESSION FRACTURE [None]
